FAERS Safety Report 5844430-X (Version None)
Quarter: 2008Q3

REPORT INFORMATION
  Report Type: 
  Country: None (occurrence: None)
  Receive Date: 20080813
  Receipt Date: 20080805
  Transmission Date: 20090109
  Serious: Yes (Hospitalization, Other)
  Sender: FDA-Public Use
  Company Number: BE-AMGEN-UK268827

PATIENT
  Sex: Male

DRUGS (14)
  1. KEPIVANCE [Suspect]
     Indication: MUCOSAL INFLAMMATION
     Route: 058
     Dates: start: 20071203, end: 20071216
  2. KEPIVANCE [Suspect]
     Route: 058
     Dates: start: 20071214, end: 20071216
  3. CARMUSTINE [Concomitant]
     Route: 042
     Dates: start: 20071206, end: 20071212
  4. ETOPOSIDE [Concomitant]
     Route: 042
     Dates: start: 20071206, end: 20071212
  5. CYTARABINE [Concomitant]
     Route: 065
     Dates: start: 20071206, end: 20071212
  6. MELPHALAN [Concomitant]
     Route: 042
     Dates: start: 20071206, end: 20071212
  7. INDERAL [Concomitant]
     Route: 048
  8. COLIMYCINE [Concomitant]
     Route: 048
     Dates: start: 20071203, end: 20071213
  9. ZOVIRAX [Concomitant]
     Route: 042
  10. BACTRIM DS [Concomitant]
     Route: 048
  11. ELTHYRONE [Concomitant]
     Route: 048
  12. DIFLUCAN [Concomitant]
     Route: 048
  13. ESCITALOPRAM [Concomitant]
     Route: 048
  14. ZANTAC [Concomitant]
     Route: 042

REACTIONS (4)
  - DIARRHOEA [None]
  - GASTROINTESTINAL DISORDER [None]
  - HYPOTENSION [None]
  - PYREXIA [None]
